FAERS Safety Report 5031340-3 (Version None)
Quarter: 2006Q2

REPORT INFORMATION
  Report Type: 
  Country: None (occurrence: None)
  Receive Date: 20060615
  Receipt Date: 20060607
  Transmission Date: 20061013
  Serious: Yes (Other)
  Sender: FDA-Public Use
  Company Number: GXKR2006SE03288

PATIENT
  Age: 76 Year
  Sex: Female

DRUGS (11)
  1. RIMACTANE [Suspect]
     Dosage: 600 MG, ORAL
     Route: 048
     Dates: start: 20051117, end: 20051228
  2. HERACILLIN (FLUCLOXACILLIN SODIUM) 500MG [Suspect]
     Dosage: ORAL
     Route: 048
     Dates: start: 20051125, end: 20051228
  3. SELOKEN ZOC (METOPROLOL SUCCINATE) [Concomitant]
  4. HALDOL [Concomitant]
  5. IMURAN [Concomitant]
  6. DUROFERON (FERROUS SULFATE) [Concomitant]
  7. PREDNISOLON PFIZER (PREDNISOLONE) [Concomitant]
  8. LASIX [Concomitant]
  9. ALVEDON (PARACETAMOL) [Concomitant]
  10. CITALOPRAM HYDROBROMIDE [Concomitant]
  11. CALCISHEW-D3 (CALCIUM CARBONATE) [Concomitant]

REACTIONS (3)
  - ALANINE AMINOTRANSFERASE INCREASED [None]
  - ASPARTATE AMINOTRANSFERASE INCREASED [None]
  - BLOOD CREATININE INCREASED [None]
